FAERS Safety Report 5764392-3 (Version None)
Quarter: 2008Q2

REPORT INFORMATION
  Report Type: 
  Country: None (occurrence: None)
  Receive Date: 20080604
  Receipt Date: 20080528
  Transmission Date: 20081010
  Serious: Yes (Other)
  Sender: FDA-Public Use
  Company Number: JPI-P-003760

PATIENT
  Age: 64 Year
  Sex: Female
  Weight: 54.4316 kg

DRUGS (1)
  1. XYREM [Suspect]
     Indication: NARCOLEPSY
     Dosage: 4.5 GM (2.25 MG, 2 IN 1 D), ORAL
     Route: 048
     Dates: start: 20080525, end: 20080525

REACTIONS (4)
  - CONDITION AGGRAVATED [None]
  - HYPERSOMNIA [None]
  - INSOMNIA [None]
  - RESTLESS LEGS SYNDROME [None]
